FAERS Safety Report 7875716-5 (Version None)
Quarter: 2011Q4

REPORT INFORMATION
  Report Type: 
  Country: None (occurrence: None)
  Receive Date: 20111031
  Receipt Date: 20111019
  Transmission Date: 20120403
  Serious: Yes (Hospitalization)
  Sender: FDA-Public Use
  Company Number: US-BAYER-201010678NA

PATIENT
  Age: 32 Year
  Sex: Female
  Weight: 59.864 kg

DRUGS (1)
  1. YASMIN [Suspect]
     Indication: CONTRACEPTION
     Dosage: UNK
     Dates: start: 20010101, end: 20030926

REACTIONS (4)
  - PAIN IN EXTREMITY [None]
  - PULMONARY EMBOLISM [None]
  - MUSCULOSKELETAL PAIN [None]
  - PAIN [None]
